FAERS Safety Report 15957447 (Version 1)
Quarter: 2019Q1

REPORT INFORMATION
  Report Type: Spontaneous
  Country: US (occurrence: US)
  Receive Date: 20190213
  Receipt Date: 20190213
  Transmission Date: 20190417
  Serious: Yes (Other)
  Sender: FDA-Public Use
  Company Number: US-PURDUE-USA-2019-0145969

PATIENT

DRUGS (2)
  1. DRONABINOL CAPSULES [Suspect]
     Active Substance: DRONABINOL
     Indication: NAUSEA
     Dosage: 5 MG, BID
     Route: 048
  2. DRONABINOL CAPSULES [Suspect]
     Active Substance: DRONABINOL
     Indication: VOMITING
     Dosage: 2.5 MG, NIGHTLY BETWEEN CHEMOTHERAPY CYCLES
     Route: 048

REACTIONS (5)
  - Cognitive disorder [Unknown]
  - Aphasia [Unknown]
  - Somnolence [Unknown]
  - Sedation [Unknown]
  - Headache [Unknown]
